FAERS Safety Report 7987605-6 (Version None)
Quarter: 2011Q4

REPORT INFORMATION
  Report Type: 
  Country: None (occurrence: None)
  Receive Date: 20111216
  Receipt Date: 20110705
  Transmission Date: 20120403
  Serious: No
  Sender: FDA-Public Use
  Company Number: US-BRISTOL-MYERS SQUIBB COMPANY-15692866

PATIENT
  Age: 58 Year
  Sex: Male
  Weight: 84 kg

DRUGS (4)
  1. PAXIL [Suspect]
     Indication: DEPRESSION
  2. KLONOPIN [Concomitant]
  3. WELLBUTRIN [Concomitant]
  4. ABILIFY [Suspect]
     Indication: DEPRESSION
     Dosage: DOSE INCREASED TO 2 TABLETS DAILY (4MG)
     Dates: start: 20110101

REACTIONS (6)
  - INSOMNIA [None]
  - ANXIETY [None]
  - WEIGHT INCREASED [None]
  - NIGHTMARE [None]
  - NAUSEA [None]
  - RESTLESSNESS [None]
